FAERS Safety Report 22634746 (Version 1)
Quarter: 2023Q2

REPORT INFORMATION
  Report Type: Report from Study
  Country: US (occurrence: US)
  Receive Date: 20230623
  Receipt Date: 20230623
  Transmission Date: 20230721
  Serious: Yes (Other)
  Sender: FDA-Public Use
  Company Number: US-002147023-NVSC2023US139512

PATIENT
  Sex: Female
  Weight: 136.08 kg

DRUGS (14)
  1. TRIAMCINOLONE [Suspect]
     Active Substance: TRIAMCINOLONE
     Indication: Psoriasis
     Dosage: UNK
     Route: 065
  2. TRIAMCINOLONE [Suspect]
     Active Substance: TRIAMCINOLONE
     Indication: Psoriatic arthropathy
  3. METHOTREXATE [Suspect]
     Active Substance: METHOTREXATE
     Indication: Psoriasis
     Dosage: UNK
     Route: 065
  4. METHOTREXATE [Suspect]
     Active Substance: METHOTREXATE
     Indication: Psoriatic arthropathy
  5. AMOXICILLIN [Suspect]
     Active Substance: AMOXICILLIN
     Indication: Psoriasis
     Dosage: UNK
     Route: 065
  6. AMOXICILLIN [Suspect]
     Active Substance: AMOXICILLIN
     Indication: Psoriatic arthropathy
  7. METFORMIN [Suspect]
     Active Substance: METFORMIN HYDROCHLORIDE
     Indication: Psoriasis
     Dosage: UNK
     Route: 065
  8. METFORMIN [Suspect]
     Active Substance: METFORMIN HYDROCHLORIDE
     Indication: Psoriatic arthropathy
  9. FAMOTIDINE [Suspect]
     Active Substance: FAMOTIDINE
     Indication: Psoriasis
     Dosage: UNK
     Route: 065
  10. FAMOTIDINE [Suspect]
     Active Substance: FAMOTIDINE
     Indication: Psoriatic arthropathy
  11. FOLIC ACID [Suspect]
     Active Substance: FOLIC ACID
     Indication: Psoriasis
     Dosage: UNK
     Route: 065
  12. FOLIC ACID [Suspect]
     Active Substance: FOLIC ACID
     Indication: Psoriatic arthropathy
  13. MORPHINE [Suspect]
     Active Substance: MORPHINE
     Indication: Psoriasis
     Dosage: UNK
     Route: 065
  14. MORPHINE [Suspect]
     Active Substance: MORPHINE
     Indication: Psoriatic arthropathy

REACTIONS (23)
  - Haemorrhage [Unknown]
  - Psoriatic arthropathy [Unknown]
  - Abdominal pain [Unknown]
  - Pain [Unknown]
  - Back pain [Unknown]
  - Eye swelling [Unknown]
  - Ear swelling [Unknown]
  - Injection site irritation [Unknown]
  - Macule [Unknown]
  - Skin lesion [Unknown]
  - Papule [Unknown]
  - Skin plaque [Unknown]
  - Psoriasis [Unknown]
  - Skin hyperpigmentation [Unknown]
  - Post inflammatory pigmentation change [Unknown]
  - Burning sensation [Unknown]
  - Pruritus [Unknown]
  - Nausea [Unknown]
  - Vomiting [Unknown]
  - Arthritis [Unknown]
  - Arthralgia [Unknown]
  - Drug ineffective [Unknown]
  - Product use in unapproved indication [Unknown]
